FAERS Safety Report 4600323-7 (Version None)
Quarter: 2005Q1

REPORT INFORMATION
  Report Type: 
  Country: None (occurrence: None)
  Receive Date: 20050303
  Receipt Date: 20050215
  Transmission Date: 20050727
  Serious: Yes (Hospitalization, Disabling, Other)
  Sender: FDA-Public Use
  Company Number: DE_041214963

PATIENT
  Age: 64 Year
  Sex: Male
  Weight: 75 kg

DRUGS (6)
  1. GEMZAR [Suspect]
     Indication: NEOPLASM MALIGNANT
     Dosage: 1000 MG/M2
     Dates: start: 20041007, end: 20041021
  2. CISPLATIN [Concomitant]
  3. RANITIDIN (RANITIDINE HYDROCHLORIDE) [Concomitant]
  4. AMBROXOL [Concomitant]
  5. ENOXAPARIN [Concomitant]
  6. VERAPAMIL [Concomitant]

REACTIONS (17)
  - ATELECTASIS [None]
  - FEBRILE NEUTROPENIA [None]
  - GRAFT COMPLICATION [None]
  - HAEMATURIA [None]
  - INFECTION [None]
  - INTERSTITIAL LUNG DISEASE [None]
  - LUNG INFILTRATION [None]
  - LYMPHADENITIS [None]
  - LYMPHADENOPATHY MEDIASTINAL [None]
  - PANCYTOPENIA [None]
  - PLEURAL EFFUSION [None]
  - PLEURISY [None]
  - PNEUMONIA [None]
  - PNEUMONITIS [None]
  - PRODUCTIVE COUGH [None]
  - PULMONARY FIBROSIS [None]
  - VASCULAR OCCLUSION [None]
